FAERS Safety Report 10442956 (Version 2)
Quarter: 2014Q3

REPORT INFORMATION
  Report Type: Spontaneous
  Country: CA (occurrence: CA)
  Receive Date: 20140909
  Receipt Date: 20140912
  Transmission Date: 20150326
  Serious: Yes (Death)
  Sender: FDA-Public Use
  Company Number: CA-BAXTER-2014BAX053326

PATIENT
  Sex: Male

DRUGS (1)
  1. EXTRANEAL [Suspect]
     Active Substance: CALCIUM CHLORIDE\ICODEXTRIN\MAGNESIUM CHLORIDE\SODIUM CHLORIDE\SODIUM LACTATE
     Indication: PERITONEAL DIALYSIS
     Route: 033

REACTIONS (3)
  - Renal failure [Fatal]
  - Cough [Recovering/Resolving]
  - Nasopharyngitis [Recovering/Resolving]
